FAERS Safety Report 4960049-7 (Version None)
Quarter: 2006Q1

REPORT INFORMATION
  Report Type: 
  Country: None (occurrence: None)
  Receive Date: 20060331
  Receipt Date: 20050418
  Transmission Date: 20060701
  Serious: Yes (Hospitalization)
  Sender: FDA-Public Use
  Company Number: US-MERCK-0504USA03495

PATIENT
  Age: 59 Year
  Sex: Female
  Weight: 59 kg

DRUGS (7)
  1. VIOXX [Suspect]
     Indication: ARTHRITIS
     Route: 048
     Dates: start: 20000301, end: 20010201
  2. LOTREL [Concomitant]
     Route: 065
  3. PRILOSEC [Concomitant]
     Route: 065
  4. PAXIL [Concomitant]
     Route: 065
  5. THEOPHYLLINE [Concomitant]
     Route: 065
  6. SEREVENT [Concomitant]
     Route: 065
  7. PROVENTIL [Concomitant]
     Route: 065

REACTIONS (17)
  - ABDOMINAL PAIN UPPER [None]
  - AORTIC DILATATION [None]
  - BRONCHIAL HYPERACTIVITY [None]
  - BRONCHITIS [None]
  - CHRONIC OBSTRUCTIVE PULMONARY DISEASE [None]
  - DIABETES MELLITUS [None]
  - HYPOTHYROIDISM [None]
  - HYPOXIA [None]
  - MYOCARDIAL INFARCTION [None]
  - NON-CARDIAC CHEST PAIN [None]
  - PANCREATITIS [None]
  - PERICARDITIS [None]
  - PERIPHERAL VASCULAR DISORDER [None]
  - PNEUMONIA [None]
  - PNEUMONITIS [None]
  - PULMONARY FIBROSIS [None]
  - SUPRAVENTRICULAR EXTRASYSTOLES [None]
